FAERS Safety Report 13116932 (Version 2)
Quarter: 2017Q1

REPORT INFORMATION
  Report Type: Report from Study
  Country: DE (occurrence: DE)
  Receive Date: 20170116
  Receipt Date: 20170306
  Transmission Date: 20170428
  Serious: Yes (Life-Threatening, Hospitalization)
  Sender: FDA-Public Use
  Company Number: DE-ROCHE-1879574

PATIENT
  Age: 68 Year
  Sex: Male
  Weight: 147 kg

DRUGS (1)
  1. ESBRIET [Suspect]
     Active Substance: PIRFENIDONE
     Indication: IDIOPATHIC PULMONARY FIBROSIS
     Route: 048
     Dates: start: 20130314

REACTIONS (2)
  - Bronchitis [Not Recovered/Not Resolved]
  - Rhinorrhoea [Not Recovered/Not Resolved]

NARRATIVE: CASE EVENT DATE: 20170109
